FAERS Safety Report 19730276 (Version 2)
Quarter: 2021Q4

REPORT INFORMATION
  Report Type: Report from Study
  Country: GB (occurrence: GB)
  Receive Date: 20210820
  Receipt Date: 20211112
  Transmission Date: 20220304
  Serious: Yes (Other)
  Sender: FDA-Public Use
  Company Number: GB-NOVARTISPH-NVSC2021GB185136

PATIENT
  Sex: Female

DRUGS (1)
  1. OMNITROPE [Suspect]
     Active Substance: SOMATROPIN
     Indication: Product used for unknown indication
     Dosage: 0.4 MG, QD
     Route: 058
     Dates: start: 2016

REACTIONS (6)
  - Lupus-like syndrome [Unknown]
  - Toothache [Unknown]
  - Tooth loss [Unknown]
  - Infection [Unknown]
  - Pain [Unknown]
  - Fatigue [Unknown]
